FAERS Safety Report 21149661 (Version 2)
Quarter: 2022Q4

REPORT INFORMATION
  Report Type: Report from Study
  Country: US (occurrence: US)
  Receive Date: 20220729
  Receipt Date: 20221123
  Transmission Date: 20230112
  Serious: Yes (Other)
  Sender: FDA-Public Use
  Company Number: US-TAKEDA-US201818446

PATIENT
  Age: 62 Year
  Sex: Female

DRUGS (1)
  1. HUMAN IMMUNOGLOBULIN G [Suspect]
     Active Substance: HUMAN IMMUNOGLOBULIN G
     Indication: Primary immunodeficiency syndrome
     Dosage: 35 GRAM, Q3WEEKS
     Route: 042

REACTIONS (6)
  - Infective exacerbation of chronic obstructive airways disease [Not Recovered/Not Resolved]
  - Pseudomonas infection [Unknown]
  - Bell^s palsy [Unknown]
  - Malaise [Unknown]
  - Urinary tract infection [Unknown]
  - Drug hypersensitivity [Unknown]

NARRATIVE: CASE EVENT DATE: 20180508
